FAERS Safety Report 8776464 (Version 2)
Quarter: 2012Q4

REPORT INFORMATION
  Report Type: 
  Country: AU (occurrence: AU)
  Receive Date: 20120910
  Receipt Date: 20120920
  Transmission Date: 20130627
  Serious: Yes (Death)
  Sender: FDA-Public Use
  Company Number: PHHY2012AU078430

PATIENT
  Sex: Female

DRUGS (3)
  1. ACLASTA [Suspect]
     Dosage: 5 mg, UNK
     Route: 042
     Dates: start: 20101105
  2. ACLASTA [Suspect]
     Dosage: 5 mg, UNK
     Route: 042
     Dates: start: 20111011
  3. CLONEA [Concomitant]
     Dosage: UNK UKN, UNK

REACTIONS (2)
  - Dementia [Fatal]
  - Pneumonia aspiration [Fatal]
